FAERS Safety Report 8829988 (Version 1)
Quarter: 2012Q4

REPORT INFORMATION
  Report Type: Report from Study
  Country: BR (occurrence: BR)
  Receive Date: 20121008
  Receipt Date: 20121008
  Transmission Date: 20130627
  Serious: Yes (Hospitalization)
  Sender: FDA-Public Use
  Company Number: BR-PFIZER INC-2012246408

PATIENT
  Age: 69 Year
  Sex: Male
  Weight: 70 kg

DRUGS (2)
  1. LIPITOR [Suspect]
     Indication: BLOOD CHOLESTEROL
     Dosage: 10 mg, daily
     Route: 048
     Dates: start: 2012, end: 2012
  2. ROSUVASTATIN [Concomitant]
     Dosage: 30 mg, 1x/day

REACTIONS (1)
  - Cerebrovascular accident [Unknown]
